FAERS Safety Report 10310305 (Version 1)
Quarter: 2014Q3

REPORT INFORMATION
  Report Type: Spontaneous
  Country: FR (occurrence: FR)
  Receive Date: 20140717
  Receipt Date: 20140717
  Transmission Date: 20150326
  Serious: Yes (Other)
  Sender: FDA-Public Use
  Company Number: FR-ROCHE-1434940

PATIENT
  Sex: Male

DRUGS (1)
  1. LUCENTIS [Suspect]
     Active Substance: RANIBIZUMAB
     Indication: PRODUCT USED FOR UNKNOWN INDICATION
     Route: 050
     Dates: start: 201407

REACTIONS (3)
  - Cataract traumatic [Not Recovered/Not Resolved]
  - Posterior capsule rupture [Not Recovered/Not Resolved]
  - Eye injury [Not Recovered/Not Resolved]

NARRATIVE: CASE EVENT DATE: 201407
